FAERS Safety Report 13250697 (Version 2)
Quarter: 2017Q1

REPORT INFORMATION
  Report Type: Spontaneous
  Country: GB (occurrence: GB)
  Receive Date: 20170220
  Receipt Date: 20170314
  Transmission Date: 20170428
  Serious: Yes (Hospitalization, Disabling)
  Sender: FDA-Public Use
  Company Number: GB-ROCHE-1894853

PATIENT
  Age: 5 Decade
  Sex: Female

DRUGS (1)
  1. MABTHERA [Suspect]
     Active Substance: RITUXIMAB
     Indication: RHEUMATOID ARTHRITIS
     Dosage: 1000MG/500MG, 6/12
     Route: 042

REACTIONS (2)
  - Local swelling [Recovered/Resolved]
  - Pharyngeal oedema [Recovered/Resolved]
